FAERS Safety Report 10818522 (Version 1)
Quarter: 2015Q1

REPORT INFORMATION
  Report Type: Report from Study
  Country: BR (occurrence: BR)
  Receive Date: 20150218
  Receipt Date: 20150218
  Transmission Date: 20150721
  Serious: Yes (Other)
  Sender: FDA-Public Use
  Company Number: PHHY2015BR018970

PATIENT
  Age: 91 Year
  Sex: Female

DRUGS (5)
  1. EXELON PATCH [Suspect]
     Active Substance: RIVASTIGMINE
     Indication: MEMORY IMPAIRMENT
     Dosage: 4.6 MG, QD (ONE PATCH OF 5 CM2, DAILY)
     Route: 062
     Dates: start: 201410
  2. EXELON PATCH [Suspect]
     Active Substance: RIVASTIGMINE
     Dosage: 9.5 MG, QD (ONE PATCH OF 10 CM2, DAILY)
     Route: 062
  3. EXELON PATCH [Suspect]
     Active Substance: RIVASTIGMINE
     Dosage: 13.3 MG, QD (ONE PATCH OF 15 CM2, DAILY)
     Route: 062
  4. MEMANTINA [Suspect]
     Active Substance: MEMANTINE HYDROCHLORIDE
     Indication: DEMENTIA
     Dosage: UNK
     Route: 065
  5. MEMANTINA [Suspect]
     Active Substance: MEMANTINE HYDROCHLORIDE
     Dosage: 2 DF, QD
     Route: 065

REACTIONS (7)
  - Memory impairment [Unknown]
  - General physical health deterioration [Unknown]
  - Nervousness [Unknown]
  - Condition aggravated [Unknown]
  - Product use issue [Unknown]
  - Dementia [Unknown]
  - Drug ineffective [Unknown]
